FAERS Safety Report 7131182-9 (Version None)
Quarter: 2010Q4

REPORT INFORMATION
  Report Type: 
  Country: None (occurrence: None)
  Receive Date: 20101124
  Receipt Date: 20101124
  Transmission Date: 20110411
  Serious: No
  Sender: FDA-Public Use
  Company Number: None

PATIENT
  Sex: Male
  Weight: 136.0791 kg

DRUGS (1)
  1. OXYCONTIN [Suspect]
     Indication: PAIN
     Dosage: 80 MG 3X DAY ?
     Dates: start: 20100912, end: 20100930

REACTIONS (4)
  - MALAISE [None]
  - MOUTH HAEMORRHAGE [None]
  - PRODUCT FORMULATION ISSUE [None]
  - RECTAL HAEMORRHAGE [None]
